FAERS Safety Report 19508519 (Version 1)
Quarter: 2021Q3

REPORT INFORMATION
  Report Type: Spontaneous
  Country: US (occurrence: US)
  Receive Date: 20210708
  Receipt Date: 20210708
  Transmission Date: 20211014
  Serious: Yes (Other)
  Sender: FDA-Public Use
  Company Number: US-ASTRAZENECA-2021A589815

PATIENT
  Age: 62 Year
  Sex: Female

DRUGS (3)
  1. RELPAX [Suspect]
     Active Substance: ELETRIPTAN HYDROBROMIDE
     Route: 065
  2. PFIZER?BIONTECH COVID?19 VACCINE [Suspect]
     Active Substance: TOZINAMERAN
     Route: 065
  3. ZOMIG [Suspect]
     Active Substance: ZOLMITRIPTAN
     Route: 065

REACTIONS (11)
  - Chest pain [Unknown]
  - Oropharyngeal discomfort [Unknown]
  - Blood pressure increased [Unknown]
  - Speech disorder [Unknown]
  - Dyskinesia [Unknown]
  - Bronchospasm [Unknown]
  - Urticaria [Unknown]
  - Palpitations [Unknown]
  - Hyperhidrosis [Unknown]
  - Anxiety [Unknown]
  - Abdominal pain upper [Unknown]

NARRATIVE: CASE EVENT DATE: 2010
